FAERS Safety Report 17135794 (Version 1)
Quarter: 2019Q4

REPORT INFORMATION
  Report Type: Spontaneous
  Country: IT (occurrence: IT)
  Receive Date: 20191210
  Receipt Date: 20191210
  Transmission Date: 20200122
  Serious: Yes (Hospitalization)
  Sender: FDA-Public Use
  Company Number: IT-CELGENEUS-ITA-20191200133

PATIENT
  Age: 71 Year
  Sex: Female
  Weight: 55 kg

DRUGS (2)
  1. SOLDESAM [Concomitant]
     Active Substance: DEXAMETHASONE
     Indication: PLASMA CELL MYELOMA
     Route: 065
     Dates: start: 20191026, end: 20191114
  2. POMALIDOMIDE [Suspect]
     Active Substance: POMALIDOMIDE
     Indication: PLASMA CELL MYELOMA
     Route: 048
     Dates: start: 20191026, end: 20191114

REACTIONS (1)
  - Bacterial sepsis [Unknown]

NARRATIVE: CASE EVENT DATE: 20191120
